FAERS Safety Report 9186135 (Version 1)
Quarter: 2013Q1

REPORT INFORMATION
  Report Type: Spontaneous
  Country: US (occurrence: US)
  Receive Date: 20130325
  Receipt Date: 20130325
  Transmission Date: 20140127
  Serious: Yes (Death)
  Sender: FDA-Public Use
  Company Number: US-GLAXOSMITHKLINE-A1011012A

PATIENT
  Age: 41 Year
  Sex: Male

DRUGS (3)
  1. PROMACTA [Suspect]
     Indication: BLOOD DISORDER
     Dosage: 50MG PER DAY
     Route: 048
     Dates: start: 20130121, end: 20130203
  2. SOTALOL [Concomitant]
  3. CALCIUM [Concomitant]

REACTIONS (6)
  - Death [Fatal]
  - Confusional state [Unknown]
  - Hallucination [Unknown]
  - Platelet count decreased [Unknown]
  - Muscular weakness [Unknown]
  - Memory impairment [Unknown]
